FAERS Safety Report 18883940 (Version 1)
Quarter: 2021Q1

REPORT INFORMATION
  Report Type: Spontaneous
  Country: US (occurrence: US)
  Receive Date: 20210211
  Receipt Date: 20210211
  Transmission Date: 20210420
  Serious: Yes (Death)
  Sender: FDA-Public Use
  Company Number: US-BIOCODEX SA-2021000048

PATIENT

DRUGS (18)
  1. DIACOMIT [Suspect]
     Active Substance: STIRIPENTOL
     Indication: EPILEPSY
     Dosage: 750 MG, QD
     Route: 048
     Dates: start: 20200504
  2. FELBAMATE. [Concomitant]
     Active Substance: FELBAMATE
  3. MULTIVITAMIN                       /00097801/ [Concomitant]
     Active Substance: VITAMINS
  4. FISH OIL [Concomitant]
     Active Substance: FISH OIL
  5. GLYCOPYRROLATE                     /00196201/ [Concomitant]
     Active Substance: GLYCOPYRRONIUM
  6. CLOBAZAM. [Concomitant]
     Active Substance: CLOBAZAM
     Indication: EPILEPSY
     Dosage: UNK
  7. MAGNESIUM [Concomitant]
     Active Substance: MAGNESIUM
  8. LEVOCARNITINE. [Concomitant]
     Active Substance: LEVOCARNITINE
  9. CAMILA [Concomitant]
     Active Substance: NORETHINDRONE
  10. CALCIUM PLUS D3 [Concomitant]
  11. DIASTAT                            /00017001/ [Concomitant]
  12. SENNA                              /00142201/ [Concomitant]
     Active Substance: SENNA LEAF
  13. EPIDIOLEX [Concomitant]
     Active Substance: CANNABIDIOL
  14. ALBUTEROL                          /00139501/ [Concomitant]
     Active Substance: ALBUTEROL
  15. CYPROHEPTADINE. [Concomitant]
     Active Substance: CYPROHEPTADINE
  16. MIRALAX [Concomitant]
     Active Substance: POLYETHYLENE GLYCOL 3350
  17. MIDAZOLAM. [Concomitant]
     Active Substance: MIDAZOLAM
  18. ZONISAMIDE. [Concomitant]
     Active Substance: ZONISAMIDE

REACTIONS (1)
  - Death [Fatal]
